FAERS Safety Report 4531297-5 (Version None)
Quarter: 2004Q4

REPORT INFORMATION
  Report Type: 
  Country: None (occurrence: None)
  Receive Date: 20041206
  Receipt Date: 20041006
  Transmission Date: 20050328
  Serious: No
  Sender: FDA-Public Use
  Company Number: USA041080357

PATIENT
  Age: 51 Year
  Sex: Female

DRUGS (4)
  1. CYMBALTA [Suspect]
     Dosage: 30 MG/2 IN THE MORNING
     Route: 048
     Dates: start: 20040901
  2. EFFEXOR [Concomitant]
     Route: 048
  3. IMITREX [Concomitant]
  4. KLONOPIN [Concomitant]

REACTIONS (2)
  - FATIGUE [None]
  - SOMNOLENCE [None]
